FAERS Safety Report 13440892 (Version 1)
Quarter: 2017Q2

REPORT INFORMATION
  Report Type: Spontaneous
  Country: US (occurrence: US)
  Receive Date: 20170413
  Receipt Date: 20170413
  Transmission Date: 20170830
  Serious: Yes (Other)
  Sender: FDA-Public Use
  Company Number: US-BION-006174

PATIENT
  Age: 82 Year
  Sex: Male
  Weight: 68.04 kg

DRUGS (1)
  1. ZYRTEC [Suspect]
     Active Substance: CETIRIZINE HYDROCHLORIDE
     Indication: URINARY TRACT INFECTION
     Dosage: 2 CAPSULES
     Route: 048
     Dates: start: 20170330, end: 20170330

REACTIONS (3)
  - Off label use [Unknown]
  - Urinary retention [Not Recovered/Not Resolved]
  - Incorrect dose administered [Not Recovered/Not Resolved]

NARRATIVE: CASE EVENT DATE: 20170330
